FAERS Safety Report 5728801-8 (Version None)
Quarter: 2008Q2

REPORT INFORMATION
  Report Type: 
  Country: None (occurrence: None)
  Receive Date: 20080430
  Receipt Date: 20080417
  Transmission Date: 20081010
  Serious: Yes (Other)
  Sender: FDA-Public Use
  Company Number: 2008MB000044

PATIENT
  Age: 62 Year
  Sex: Female

DRUGS (1)
  1. CEPHALEXIN [Suspect]
     Indication: FURUNCLE
     Dosage: PO
     Route: 048

REACTIONS (2)
  - SCAR [None]
  - VASCULITIS NECROTISING [None]
